FAERS Safety Report 7930060-2 (Version None)
Quarter: 2011Q4

REPORT INFORMATION
  Report Type: 
  Country: None (occurrence: None)
  Receive Date: 20111121
  Receipt Date: 20111116
  Transmission Date: 20120403
  Serious: Yes (Hospitalization)
  Sender: FDA-Public Use
  Company Number: NL-SANOFI-AVENTIS-2011SA075352

PATIENT
  Age: 80 Year
  Sex: Female

DRUGS (6)
  1. ZOLPIDEM [Concomitant]
     Route: 065
  2. PLAQUENIL [Suspect]
     Route: 065
  3. ACETAMINOPHEN [Concomitant]
     Route: 065
  4. CARBASALATE CALCIUM [Concomitant]
     Route: 065
  5. NIFEDIPINE [Concomitant]
     Route: 065
  6. METOPROLOL TARTRATE [Concomitant]
     Route: 065

REACTIONS (7)
  - FEAR [None]
  - SYNCOPE [None]
  - COMA [None]
  - CONFUSIONAL STATE [None]
  - HYPOGLYCAEMIA [None]
  - LOSS OF CONSCIOUSNESS [None]
  - WEIGHT DECREASED [None]
